FAERS Safety Report 25469661 (Version 2)
Quarter: 2025Q3

REPORT INFORMATION
  Report Type: Spontaneous
  Country: EU (occurrence: EU)
  Receive Date: 20250623
  Receipt Date: 20250704
  Transmission Date: 20251020
  Serious: Yes (Death, Hospitalization, Other)
  Sender: VERITY PHARMACEUTICALS INC.
  Company Number: EU-VER-202500027

PATIENT
  Age: 82 Year
  Sex: Male

DRUGS (5)
  1. TRIPTORELIN PAMOATE [Suspect]
     Active Substance: TRIPTORELIN PAMOATE
     Indication: Prostate cancer
     Dosage: POWDER FOR PROLONGED-RELEASE SUSPENSION FOR INJECTION
     Route: 051
     Dates: start: 202001, end: 20210603
  2. COVID VACCINE PFIZER [Concomitant]
     Route: 065
     Dates: start: 20210416
  3. COVID VACCINE ASTRA ZENECA [Concomitant]
     Route: 065
     Dates: start: 20210301
  4. MORPHINE [Concomitant]
     Active Substance: MORPHINE
     Route: 065
  5. MIDAZOLAM [Concomitant]
     Active Substance: MIDAZOLAM
     Route: 065
     Dates: start: 20210704

REACTIONS (22)
  - Anaemia [Unknown]
  - Dizziness [Unknown]
  - Pallor [Unknown]
  - Coma [Unknown]
  - Hypothermia [Unknown]
  - Prostatic specific antigen increased [Unknown]
  - Weight decreased [Unknown]
  - Decreased appetite [Unknown]
  - Malaise [Unknown]
  - Neoplasm malignant [Fatal]
  - Dysphagia [Unknown]
  - Drug ineffective [Unknown]
  - Syncope [Unknown]
  - Pulmonary mass [Unknown]
  - Renal colic [Unknown]
  - Off label use [Unknown]
  - Inappropriate schedule of product administration [Unknown]
  - Overdose [Unknown]
  - General physical condition abnormal [Unknown]
  - Hyperhidrosis [Unknown]
  - Vomiting [Unknown]
  - Weight increased [Unknown]

NARRATIVE: CASE EVENT DATE: 20210501
